FAERS Safety Report 11235730 (Version 2)
Quarter: 2015Q3

REPORT INFORMATION
  Report Type: Spontaneous
  Country: FR (occurrence: FR)
  Receive Date: 20150702
  Receipt Date: 20150806
  Transmission Date: 20151125
  Serious: Yes (Death, Other)
  Sender: FDA-Public Use
  Company Number: FR-EMD SERONO-8031974

PATIENT
  Sex: Female
  Weight: 11 kg

DRUGS (2)
  1. MONTELUKAST [Concomitant]
     Active Substance: MONTELUKAST SODIUM
     Indication: PRODUCT USED FOR UNKNOWN INDICATION
  2. SAIZEN [Suspect]
     Active Substance: SOMATROPIN
     Indication: FOETAL GROWTH RESTRICTION
     Route: 058
     Dates: start: 20150205

REACTIONS (2)
  - Haemophilus infection [Unknown]
  - Cardiac failure acute [Fatal]

NARRATIVE: CASE EVENT DATE: 2015
